FAERS Safety Report 4917049-2 (Version None)
Quarter: 2006Q1

REPORT INFORMATION
  Report Type: 
  Country: None (occurrence: None)
  Receive Date: 20060216
  Receipt Date: 20060216
  Transmission Date: 20060701
  Serious: Yes (Hospitalization)
  Sender: FDA-Public Use
  Company Number: None

PATIENT
  Age: 49 Year
  Sex: Male
  Weight: 84 kg

DRUGS (2)
  1. DIAZEPAM [Suspect]
     Indication: AGITATION
     Dosage: UNKNOWN WHAT PATIENT ACTUALLY TOOK
     Dates: start: 20051012
  2. DIAZEPAM [Suspect]
     Indication: SCHIZOAFFECTIVE DISORDER
     Dosage: UNKNOWN WHAT PATIENT ACTUALLY TOOK
     Dates: start: 20051012

REACTIONS (1)
  - INTENTIONAL OVERDOSE [None]
